FAERS Safety Report 5517242-4 (Version None)
Quarter: 2007Q4

REPORT INFORMATION
  Report Type: 
  Country: None (occurrence: None)
  Receive Date: 20071114
  Receipt Date: 20070912
  Transmission Date: 20080405
  Serious: No
  Sender: FDA-Public Use
  Company Number: A0680800A

PATIENT
  Age: 60 Year
  Sex: Male

DRUGS (1)
  1. COMMIT [Suspect]

REACTIONS (5)
  - BLISTER [None]
  - INCREASED UPPER AIRWAY SECRETION [None]
  - INTENTIONAL DRUG MISUSE [None]
  - NICOTINE DEPENDENCE [None]
  - RASH PAPULAR [None]
